FAERS Safety Report 5102717-2 (Version None)
Quarter: 2006Q3

REPORT INFORMATION
  Report Type: 
  Country: None (occurrence: None)
  Receive Date: 20060912
  Receipt Date: 20060207
  Transmission Date: 20061208
  Serious: Yes (Other)
  Sender: FDA-Public Use
  Company Number: GB-BRISTOL-MYERS SQUIBB COMPANY-13278429

PATIENT
  Age: 23 Year
  Sex: Female
  Weight: 89 kg

DRUGS (7)
  1. ABILIFY [Suspect]
  2. QUETIAPINE [Concomitant]
     Indication: PSYCHOTIC DISORDER
     Dosage: DOSE WAS REDUCED TO 10 MG BID ON 23-JAN-06, THEN 15 MG DAILY ON 30-JAN-06, AND THEN WITHDRAWN.
     Route: 048
     Dates: start: 20040715, end: 20060131
  3. FLUOXETINE [Concomitant]
     Indication: DEPRESSION
     Dosage: THE DOSE WAS REDUCED TO 20 DAILY ON 24-JAN-06, THEN WITHDRAWN.
     Route: 048
     Dates: start: 20050826, end: 20060124
  4. DIAZEPAM [Concomitant]
     Route: 048
  5. SENNA [Concomitant]
     Route: 048
  6. LACTULOSE [Concomitant]
     Route: 048
  7. ZOPICLONE [Concomitant]
     Indication: INSOMNIA
     Route: 048
     Dates: start: 20051213, end: 20060124

REACTIONS (2)
  - DIZZINESS [None]
  - HYPOGLYCAEMIA [None]
